FAERS Safety Report 9355118 (Version 3)
Quarter: 2013Q3

REPORT INFORMATION
  Report Type: Spontaneous
  Country: US (occurrence: US)
  Receive Date: 20130619
  Receipt Date: 20130731
  Transmission Date: 20140515
  Serious: Yes (Other)
  Sender: FDA-Public Use
  Company Number: US-BAYER-2013-073091

PATIENT
  Age: 41 Year
  Sex: Female
  Weight: 79 kg

DRUGS (7)
  1. MIRENA [Suspect]
     Indication: CONTRACEPTION
     Dosage: 20 MCG/24HR, CONT
     Route: 015
     Dates: start: 20120308, end: 20121120
  2. MIRENA [Suspect]
     Indication: DYSMENORRHOEA
  3. MIRENA [Suspect]
     Indication: MENORRHAGIA
  4. IBUPROFEN [Concomitant]
     Dosage: 800 MG, UNK
     Route: 048
  5. TRAMADOL [Concomitant]
  6. DIFLUCAN [Concomitant]
  7. HYDROCHLOROTHIAZIDE [Concomitant]

REACTIONS (12)
  - Intra-uterine contraceptive device removal [Recovered/Resolved]
  - Genital haemorrhage [None]
  - Medical device complication [Recovered/Resolved]
  - Pelvic pain [Recovered/Resolved]
  - Fatigue [None]
  - Syncope [None]
  - Pyrexia [None]
  - Ovarian cyst [None]
  - Dysmenorrhoea [None]
  - Metrorrhagia [None]
  - Uterine leiomyoma [None]
  - Drug ineffective [None]
